FAERS Safety Report 7890102-X (Version None)
Quarter: 2011Q4

REPORT INFORMATION
  Report Type: 
  Country: None (occurrence: None)
  Receive Date: 20111103
  Receipt Date: 20111024
  Transmission Date: 20120403
  Serious: Yes (Hospitalization)
  Sender: FDA-Public Use
  Company Number: JP-ABBOTT-11P-087-0869441-00

PATIENT
  Age: 65 Year
  Sex: Female

DRUGS (2)
  1. AKINETON [Suspect]
     Indication: PARKINSONISM
     Route: 048
  2. BLONANSERIN [Suspect]
     Indication: DEPRESSIVE SYMPTOM
     Route: 048

REACTIONS (4)
  - CATARACT [None]
  - ACUTE MYELOID LEUKAEMIA [None]
  - GLAUCOMA [None]
  - NEUROLEPTIC MALIGNANT SYNDROME [None]
